FAERS Safety Report 24594336 (Version 2)
Quarter: 2025Q1

REPORT INFORMATION
  Report Type: Spontaneous
  Country: ES (occurrence: ES)
  Receive Date: 20241108
  Receipt Date: 20250124
  Transmission Date: 20250408
  Serious: Yes (Hospitalization, Other)
  Sender: ALEXION PHARMACEUTICALS
  Company Number: IT-AstraZeneca-CH-00728739A

PATIENT

DRUGS (1)
  1. TAGRISSO [Suspect]
     Active Substance: OSIMERTINIB
     Indication: Lung neoplasm malignant

REACTIONS (5)
  - Respiratory arrest [Unknown]
  - Pulmonary thrombosis [Unknown]
  - Gastrointestinal disorder [Unknown]
  - Cough [Unknown]
  - Dyspnoea [Unknown]
